FAERS Safety Report 18924427 (Version 1)
Quarter: 2021Q1

REPORT INFORMATION
  Report Type: Spontaneous
  Country: US (occurrence: US)
  Receive Date: 20210222
  Receipt Date: 20210222
  Transmission Date: 20210420
  Serious: No
  Sender: FDA-Public Use
  Company Number: US-TEVA-2019-US-1079095

PATIENT

DRUGS (1)
  1. PROAIR HFA [Suspect]
     Active Substance: ALBUTEROL SULFATE

REACTIONS (3)
  - Drug delivery system issue [Unknown]
  - Device issue [Unknown]
  - Drug ineffective [Unknown]
